FAERS Safety Report 8384123-0 (Version None)
Quarter: 2012Q2

REPORT INFORMATION
  Report Type: 
  Country: None (occurrence: None)
  Receive Date: 20120524
  Receipt Date: 20120521
  Transmission Date: 20120825
  Serious: Yes (Other)
  Sender: FDA-Public Use
  Company Number: FR-ROCHE-1071149

PATIENT
  Sex: Female

DRUGS (3)
  1. ACTEMRA [Suspect]
     Indication: RHEUMATOID ARTHRITIS
     Route: 042
  2. METHOTREXATE [Concomitant]
     Dosage: 5 TO 6 MG
  3. CORTICOID [Concomitant]
     Dosage: 5 TO 6 MG DAILY

REACTIONS (2)
  - VASCULITIS [None]
  - MUCOSAL NECROSIS [None]
